FAERS Safety Report 12871284 (Version 4)
Quarter: 2016Q4

REPORT INFORMATION
  Report Type: Report from Study
  Country: HU (occurrence: HU)
  Receive Date: 20161020
  Receipt Date: 20161116
  Transmission Date: 20170207
  Serious: Yes (Hospitalization)
  Sender: FDA-Public Use
  Company Number: HU-AMGEN-HUNCT2016144968

PATIENT
  Age: 69 Year
  Sex: Female
  Weight: 67 kg

DRUGS (12)
  1. PERINDOPRIL [Concomitant]
     Active Substance: PERINDOPRIL
     Dosage: 5 MG, UNK. (2X1/2 AT NIGHT)
  2. ASPIRIN. [Concomitant]
     Active Substance: ASPIRIN
     Dosage: 100 MG, UNK
  3. PIRACETAM [Concomitant]
     Active Substance: PIRACETAM
     Dosage: 1200 MG, BID
  4. PREFILLED AUTOINJECTOR/PEN [Suspect]
     Active Substance: DEVICE
     Indication: DYSLIPIDAEMIA
     Dosage: UNK
     Route: 058
     Dates: start: 20130813, end: 20160920
  5. AMLODIPINE [Concomitant]
     Active Substance: AMLODIPINE BESYLATE
     Dosage: 5 MG, UNK,(2X1/2 AT NIGHT)
  6. FUROSEMIDE. [Concomitant]
     Active Substance: FUROSEMIDE
     Dosage: UNK
  7. PANTOPRAZOLE [Concomitant]
     Active Substance: PANTOPRAZOLE SODIUM
     Dosage: 20 MG, BID
  8. CLOPIDOGREL [Concomitant]
     Active Substance: CLOPIDOGREL BISULFATE
     Dosage: UNK UNK, QD
  9. TRIMETAZIDIN [Concomitant]
     Dosage: 35 MG, BID
  10. ATORVASTATIN [Suspect]
     Active Substance: ATORVASTATIN
     Indication: DYSLIPIDAEMIA
     Dosage: 80 MG, QD
     Route: 065
     Dates: start: 20130711, end: 20160928
  11. METOPROLOL SUCCINATE. [Concomitant]
     Active Substance: METOPROLOL SUCCINATE
     Dosage: 25 MG, BID
  12. AMG 145 [Suspect]
     Active Substance: EVOLOCUMAB
     Indication: DYSLIPIDAEMIA
     Dosage: 140 MG, Q2WK
     Route: 058
     Dates: start: 20130813, end: 20160920

REACTIONS (1)
  - Hepatic enzyme increased [Not Recovered/Not Resolved]

NARRATIVE: CASE EVENT DATE: 20160928
